FAERS Safety Report 10387857 (Version 5)
Quarter: 2014Q3

REPORT INFORMATION
  Report Type: Spontaneous
  Country: CH (occurrence: None)
  Receive Date: 20140813
  Receipt Date: 20140922
  Transmission Date: 20150326
  Serious: Yes (Life-Threatening, Hospitalization, Other)
  Sender: FDA-Public Use
  Company Number: ADR-2014-01402

PATIENT
  Age: 35 Year
  Sex: Female

DRUGS (6)
  1. CIPRALEX [Suspect]
     Active Substance: ESCITALOPRAM OXALATE
  2. DAFALGAN [Suspect]
     Active Substance: ACETAMINOPHEN
  3. CLEXANE [Suspect]
     Active Substance: ENOXAPARIN SODIUM
  4. IMPORTAL SOLUTION 30 ML [Suspect]
     Active Substance: LACTITOL
  5. LIORESAL [Suspect]
     Active Substance: BACLOFEN
     Indication: INJURY
  6. LIORESAL [Suspect]
     Active Substance: BACLOFEN
     Indication: QUADRIPLEGIA

REACTIONS (10)
  - Device connection issue [None]
  - Tonic clonic movements [None]
  - Disease recurrence [None]
  - Device leakage [None]
  - Clonus [None]
  - Muscle spasticity [None]
  - Movement disorder [None]
  - Underdose [None]
  - Headache [None]
  - Altered state of consciousness [None]

NARRATIVE: CASE EVENT DATE: 20140805
